FAERS Safety Report 4551474-7 (Version None)
Quarter: 2005Q1

REPORT INFORMATION
  Report Type: 
  Country: None (occurrence: None)
  Receive Date: 20050111
  Receipt Date: 20041227
  Transmission Date: 20050727
  Serious: Yes (Hospitalization)
  Sender: FDA-Public Use
  Company Number: ZICO001151

PATIENT
  Age: 45 Year
  Sex: Male
  Weight: 81.6475 kg

DRUGS (10)
  1. PRIALT [Suspect]
     Indication: PAIN
     Dosage: 0.20 MCG/HR INTRATHECAL
     Route: 037
     Dates: start: 20041018, end: 20041213
  2. METHADONE HCL [Concomitant]
  3. COUMADIN [Concomitant]
  4. ASPIRIN [Concomitant]
  5. HYZAAR [Concomitant]
  6. CLONIDINE [Concomitant]
  7. AMBIEN [Concomitant]
  8. PAXIL [Concomitant]
  9. NEURONTIN [Concomitant]
  10. FLOMAX [Concomitant]

REACTIONS (13)
  - CATHETER RELATED COMPLICATION [None]
  - FEMORAL ARTERIAL STENOSIS [None]
  - FEMORAL ARTERY OCCLUSION [None]
  - GRAFT COMPLICATION [None]
  - HAEMORRHAGE [None]
  - HYPOTONIC URINARY BLADDER [None]
  - NEUROGENIC BLADDER [None]
  - PERIPHERAL ISCHAEMIA [None]
  - POST PROCEDURAL COMPLICATION [None]
  - URINARY BLADDER HAEMORRHAGE [None]
  - UROSEPSIS [None]
  - VASCULAR BYPASS DYSFUNCTION [None]
  - VASCULAR STENOSIS [None]
